FAERS Safety Report 24881961 (Version 1)
Quarter: 2025Q1

REPORT INFORMATION
  Report Type: Spontaneous
  Country: ZA (occurrence: ZA)
  Receive Date: 20250124
  Receipt Date: 20250124
  Transmission Date: 20250408
  Serious: Yes (Hospitalization, Other)
  Sender: NOVITIUM PHARMA
  Company Number: ZA-NOVITIUMPHARMA-2025ZANVP00120

PATIENT
  Age: 24 Year
  Sex: Female

DRUGS (3)
  1. PREDNISONE [Suspect]
     Active Substance: PREDNISONE
     Indication: Metabolic syndrome
     Route: 048
  2. GLUCAGON [Concomitant]
     Active Substance: GLUCAGON
     Indication: Symptomatic treatment
  3. CALCIUM [Concomitant]
     Active Substance: CALCIUM
     Indication: Symptomatic treatment

REACTIONS (3)
  - Adrenocortical insufficiency acute [Unknown]
  - Drug withdrawal syndrome [Unknown]
  - Pseudo Cushing^s syndrome [Unknown]
